FAERS Safety Report 23835791 (Version 1)
Quarter: 2024Q2

REPORT INFORMATION
  Report Type: Spontaneous
  Country: ES (occurrence: ES)
  Receive Date: 20240509
  Receipt Date: 20240509
  Transmission Date: 20240716
  Serious: Yes (Other)
  Sender: FDA-Public Use
  Company Number: ES-TEYRO-2024-TY-000150

PATIENT
  Age: 55 Year
  Sex: Male

DRUGS (6)
  1. CARBOPLATIN [Suspect]
     Active Substance: CARBOPLATIN
     Indication: Lung adenocarcinoma stage IV
     Dosage: AUC 5, EVERY 3 WEEKS
     Route: 065
     Dates: start: 202104
  2. PEMETREXED [Suspect]
     Active Substance: PEMETREXED
     Indication: Lung adenocarcinoma stage IV
     Dosage: 175 MG/SQM, EVERY 3 WEEKS
     Route: 065
     Dates: start: 202104
  3. NIVOLUMAB [Suspect]
     Active Substance: NIVOLUMAB
     Indication: Lung adenocarcinoma stage IV
     Dosage: 360 MG, EVERY 3 WEEKS
     Route: 065
     Dates: start: 202104
  4. IPILIMUMAB [Suspect]
     Active Substance: IPILIMUMAB
     Indication: Lung adenocarcinoma stage IV
     Dosage: 1 MG/KG, EVERY 6 WEEKS
     Route: 065
     Dates: start: 202104
  5. VITAMIN B12 [Suspect]
     Active Substance: CYANOCOBALAMIN
     Indication: Lung adenocarcinoma stage IV
     Dosage: TWO CYCLES, EVERY 3 WEEKS
     Route: 065
     Dates: start: 202104
  6. FOLIC ACID [Suspect]
     Active Substance: FOLIC ACID
     Indication: Lung adenocarcinoma stage IV
     Dosage: TWO CYCLES, EVERY 3 WEEKS
     Route: 065
     Dates: start: 202104

REACTIONS (2)
  - Therapy partial responder [Unknown]
  - Off label use [Unknown]
